FAERS Safety Report 23794768 (Version 1)
Quarter: 2024Q2

REPORT INFORMATION
  Report Type: Spontaneous
  Country: US (occurrence: None)
  Receive Date: 20240426
  Receipt Date: 20240426
  Transmission Date: 20240716
  Serious: Yes (unspecified)
  Sender: FDA-Public Use
  Company Number: None

PATIENT
  Age: 43 Year
  Sex: Female

DRUGS (1)
  1. TREMFYA [Suspect]
     Active Substance: GUSELKUMAB
     Indication: Psoriatic arthropathy
     Dosage: 100MG EVERY 8 WEEKS SUBCUTANEOUS?
     Route: 058

REACTIONS (8)
  - Hip surgery [None]
  - Nasopharyngitis [None]
  - Dry skin [None]
  - Pruritus [None]
  - Dermatitis [None]
  - Pain in extremity [None]
  - Dry skin [None]
  - Back pain [None]
